FAERS Safety Report 18667935 (Version 3)
Quarter: 2023Q4

REPORT INFORMATION
  Report Type: Spontaneous
  Country: US (occurrence: US)
  Receive Date: 20201228
  Receipt Date: 20231027
  Transmission Date: 20240110
  Serious: No
  Sender: FDA-Public Use
  Company Number: US-GSKCCFUS-CASE-00929645_AE-54919

PATIENT
  Age: 12 Year
  Sex: Male

DRUGS (2)
  1. NUCALA [Suspect]
     Active Substance: MEPOLIZUMAB
     Indication: Hypereosinophilic syndrome
     Dosage: 3 DF
     Dates: start: 20201203
  2. NUCALA [Suspect]
     Active Substance: MEPOLIZUMAB
     Dosage: 300 MG, Q4W

REACTIONS (3)
  - Injection site pain [Recovered/Resolved]
  - Incorrect dose administered [Unknown]
  - Product complaint [Unknown]

NARRATIVE: CASE EVENT DATE: 20201203
